FAERS Safety Report 7215435-1 (Version None)
Quarter: 2011Q1

REPORT INFORMATION
  Report Type: 
  Country: None (occurrence: None)
  Receive Date: 20110107
  Receipt Date: 20110106
  Transmission Date: 20110831
  Serious: Yes (Death, Hospitalization, Other)
  Sender: FDA-Public Use
  Company Number: US-ASTRAZENECA-2006UW07951

PATIENT
  Age: 16410 Day
  Sex: Male
  Weight: 94.3 kg

DRUGS (33)
  1. ARICEPT [Concomitant]
  2. PAXIL [Concomitant]
  3. NORVASC [Concomitant]
     Dates: start: 20021216
  4. HUMALOG PLUS [Concomitant]
  5. NEXIUM [Concomitant]
  6. INTERFERON [Concomitant]
  7. ACCUPRIL [Concomitant]
     Dates: start: 20021216
  8. PEG-INTRON [Concomitant]
     Dates: start: 20021216
  9. TYLENOL-500 [Concomitant]
  10. ALTITRAZODONE [Concomitant]
  11. LANTUS [Concomitant]
  12. SEROQUEL [Suspect]
     Indication: INSOMNIA
     Dosage: 50 TO 300 MG
     Route: 048
     Dates: start: 20000101, end: 20050101
  13. SEROQUEL [Suspect]
     Dosage: 50-300 MG
     Route: 048
     Dates: start: 20000101, end: 20010101
  14. SEROQUEL [Suspect]
     Route: 048
     Dates: start: 20010101
  15. LOPRESSOR [Concomitant]
  16. HUMULIN N [Concomitant]
  17. CATAPRES [Concomitant]
  18. SENOKOT [Concomitant]
  19. XANAX [Concomitant]
  20. AMBIEN [Concomitant]
  21. REBETOL [Concomitant]
     Dates: start: 20021216
  22. SEROQUEL [Suspect]
     Dosage: 25 TO 300 MG
     Route: 048
  23. PROTONIX [Concomitant]
  24. GLUCOPHAGE [Concomitant]
  25. DESIMIPRAMINE [Concomitant]
  26. VASOTEC [Concomitant]
  27. WELLBUTRIN XL [Concomitant]
     Dates: start: 20021216
  28. KLONOPIN [Concomitant]
     Dates: start: 20021216
  29. AMARYL [Concomitant]
  30. GLUCOTROL [Concomitant]
  31. OXYCONTIN [Concomitant]
     Dosage: 20 MG TO 40 MG
     Route: 048
     Dates: start: 20030723
  32. BUSPAR [Concomitant]
  33. EFFEXOR [Concomitant]
     Dates: start: 20021216

REACTIONS (31)
  - GLOSSITIS [None]
  - AMNESIA [None]
  - HYPERHIDROSIS [None]
  - RHINITIS [None]
  - PNEUMONIA [None]
  - HYPERLIPIDAEMIA [None]
  - TYPE 2 DIABETES MELLITUS [None]
  - PAIN [None]
  - OESOPHAGITIS [None]
  - ATTENTION DEFICIT/HYPERACTIVITY DISORDER [None]
  - ESSENTIAL HYPERTENSION [None]
  - BLOOD PRESSURE INCREASED [None]
  - GASTROINTESTINAL HAEMORRHAGE [None]
  - BRADYPHRENIA [None]
  - PANIC DISORDER [None]
  - DEATH [None]
  - RETINOPATHY [None]
  - PSYCHOTIC DISORDER [None]
  - IRON DEFICIENCY ANAEMIA [None]
  - LIMB INJURY [None]
  - HEPATITIS C [None]
  - DIABETES MELLITUS INADEQUATE CONTROL [None]
  - COMMINUTED FRACTURE [None]
  - MAJOR DEPRESSION [None]
  - ACUTE PSYCHOSIS [None]
  - UPPER RESPIRATORY TRACT INFECTION [None]
  - CHILLS [None]
  - NEPHROPATHY [None]
  - DIABETIC COMPLICATION [None]
  - ANXIETY [None]
  - TYPE 1 DIABETES MELLITUS [None]
